FAERS Safety Report 17680842 (Version 1)
Quarter: 2020Q2

REPORT INFORMATION
  Report Type: Spontaneous
  Country: CA (occurrence: CA)
  Receive Date: 20200417
  Receipt Date: 20200417
  Transmission Date: 20200714
  Serious: Yes (Other)
  Sender: FDA-Public Use
  Company Number: CA-JNJFOC-20200415254

PATIENT
  Age: 47 Year
  Sex: Male

DRUGS (26)
  1. ABACAVIR. [Suspect]
     Active Substance: ABACAVIR
     Indication: HIV INFECTION
     Route: 065
     Dates: start: 200708, end: 201012
  2. TACROLIMUS. [Interacting]
     Active Substance: TACROLIMUS
     Route: 065
     Dates: start: 200707
  3. PREZISTA [Suspect]
     Active Substance: DARUNAVIR ETHANOLATE
     Indication: HIV INFECTION
     Route: 048
     Dates: start: 200708, end: 201012
  4. TACROLIMUS. [Interacting]
     Active Substance: TACROLIMUS
     Dosage: 0.2 MG EVERY OTHER DAY DECREASED GRADUALLY UNTIL 0.07 MG EVERY OTHER DAY
     Route: 065
     Dates: start: 200708, end: 201012
  5. CYCLOSPORINE. [Interacting]
     Active Substance: CYCLOSPORINE
     Route: 065
     Dates: start: 20110903, end: 20110930
  6. CYCLOSPORINE. [Interacting]
     Active Substance: CYCLOSPORINE
     Dosage: 20 MG AT AM AND 10 MG AT PM
     Route: 065
     Dates: start: 201110, end: 201110
  7. PREZISTA [Suspect]
     Active Substance: DARUNAVIR ETHANOLATE
     Route: 048
     Dates: start: 201110, end: 201205
  8. CYCLOSPORINE. [Interacting]
     Active Substance: CYCLOSPORINE
     Indication: IMMUNOSUPPRESSION
     Dosage: 3 MG EVERY OTHER DAY INCREASED GRADULLAY
     Route: 065
     Dates: start: 201109
  9. PREZISTA [Suspect]
     Active Substance: DARUNAVIR ETHANOLATE
     Route: 048
     Dates: start: 201101, end: 201109
  10. PREZISTA [Suspect]
     Active Substance: DARUNAVIR ETHANOLATE
     Route: 048
     Dates: start: 201609
  11. RITONAVIR. [Suspect]
     Active Substance: RITONAVIR
     Route: 065
     Dates: start: 201110, end: 201205
  12. ETRAVIRINE [Suspect]
     Active Substance: ETRAVIRINE
     Indication: HIV INFECTION
     Route: 065
     Dates: start: 201110, end: 201205
  13. TACROLIMUS. [Interacting]
     Active Substance: TACROLIMUS
     Route: 065
     Dates: start: 200701
  14. CYCLOSPORINE. [Interacting]
     Active Substance: CYCLOSPORINE
     Route: 065
     Dates: start: 201609, end: 201609
  15. RITONAVIR. [Suspect]
     Active Substance: RITONAVIR
     Indication: HIV INFECTION
     Route: 065
     Dates: start: 200708, end: 201012
  16. TRUVADA [Suspect]
     Active Substance: EMTRICITABINE\TENOFOVIR DISOPROXIL FUMARATE
     Indication: HIV INFECTION
     Dosage: (TENOFOVIR 300 MG AND EMTRICITABINE 200 MG
     Route: 065
     Dates: start: 201101, end: 201109
  17. RALTEGRAVIR. [Suspect]
     Active Substance: RALTEGRAVIR
     Indication: HIV INFECTION
     Route: 065
     Dates: start: 201110, end: 201205
  18. TACROLIMUS. [Interacting]
     Active Substance: TACROLIMUS
     Dosage: 0.07 MG EVERY OTHER DAY
     Route: 065
     Dates: start: 201101, end: 201109
  19. TACROLIMUS. [Interacting]
     Active Substance: TACROLIMUS
     Indication: IMMUNOSUPPRESSION
     Route: 065
     Dates: start: 2006
  20. TACROLIMUS. [Interacting]
     Active Substance: TACROLIMUS
     Route: 065
     Dates: start: 200705
  21. LAMIVUDINE. [Suspect]
     Active Substance: LAMIVUDINE
     Indication: HIV INFECTION
     Route: 065
     Dates: start: 200708, end: 201012
  22. RITONAVIR. [Suspect]
     Active Substance: RITONAVIR
     Route: 065
     Dates: start: 201101, end: 201109
  23. GENVOYA [Suspect]
     Active Substance: COBICISTAT\ELVITEGRAVIR\EMTRICITABINE\TENOFOVIR ALAFENAMIDE FUMARATE
     Indication: HIV INFECTION
     Dosage: ELVITEGRAVIR 150 MG+COBICISTAT 150 MG+EMTRICITABINE 200 MG+TENOFOVIR 10 MG
     Route: 065
     Dates: start: 201609
  24. CYCLOSPORINE. [Interacting]
     Active Substance: CYCLOSPORINE
     Route: 065
     Dates: start: 201311, end: 201608
  25. CYCLOSPORINE. [Interacting]
     Active Substance: CYCLOSPORINE
     Dosage: 20 MG AM AND 10 MG PM
     Route: 065
     Dates: start: 201611, end: 201611
  26. CYCLOSPORINE. [Interacting]
     Active Substance: CYCLOSPORINE
     Dosage: 25 MG AM AND 10 MG PM
     Route: 065
     Dates: start: 201703, end: 201703

REACTIONS (1)
  - Drug interaction [Unknown]
